FAERS Safety Report 5091760-8 (Version None)
Quarter: 2006Q3

REPORT INFORMATION
  Report Type: 
  Country: None (occurrence: None)
  Receive Date: 20060829
  Receipt Date: 20060510
  Transmission Date: 20061208
  Serious: No
  Sender: FDA-Public Use
  Company Number: US-BRISTOL-MYERS SQUIBB COMPANY-13373204

PATIENT
  Age: 77 Year
  Sex: Male
  Weight: 93 kg

DRUGS (7)
  1. ERBITUX [Suspect]
     Indication: COLON CANCER METASTATIC
     Route: 042
     Dates: start: 20060405, end: 20060405
  2. BENADRYL [Concomitant]
     Indication: PREMEDICATION
  3. TYLENOL [Concomitant]
     Indication: PREMEDICATION
  4. DEXAMETHASONE [Concomitant]
     Indication: PREMEDICATION
  5. COUMADIN [Concomitant]
  6. AVASTIN [Concomitant]
  7. IRINOTECAN HCL [Concomitant]

REACTIONS (2)
  - CONJUNCTIVITIS [None]
  - RASH [None]
